FAERS Safety Report 25503086 (Version 1)
Quarter: 2025Q3

REPORT INFORMATION
  Report Type: Spontaneous
  Country: PK (occurrence: PK)
  Receive Date: 20250702
  Receipt Date: 20250702
  Transmission Date: 20251021
  Serious: Yes (Death, Hospitalization, Other)
  Sender: Steriscience PTE
  Company Number: PK-STERISCIENCE B.V.-2025-ST-001252

PATIENT
  Age: 72 Year
  Sex: Female

DRUGS (10)
  1. MEROPENEM [Suspect]
     Active Substance: MEROPENEM
     Indication: Aeromonas infection
     Route: 042
  2. MEROPENEM [Suspect]
     Active Substance: MEROPENEM
     Indication: Enterococcal infection
  3. VANCOMYCIN [Suspect]
     Active Substance: VANCOMYCIN
     Indication: Enterococcal infection
     Route: 042
  4. VANCOMYCIN [Suspect]
     Active Substance: VANCOMYCIN
     Indication: Aeromonas infection
  5. BORIC ACID\CALCIUM CHLORIDE [Suspect]
     Active Substance: BORIC ACID\CALCIUM CHLORIDE
     Indication: Necrotising fasciitis
     Route: 065
  6. COLISTIMETHATE SODIUM [Suspect]
     Active Substance: COLISTIMETHATE SODIUM
     Indication: Aeromonas infection
     Route: 042
  7. COLISTIMETHATE SODIUM [Suspect]
     Active Substance: COLISTIMETHATE SODIUM
     Indication: Enterococcal infection
  8. CEFIXIME [Concomitant]
     Active Substance: CEFIXIME
     Indication: Antibiotic therapy
     Route: 048
  9. SALINE [Concomitant]
     Active Substance: SODIUM CHLORIDE
     Indication: Wound treatment
     Route: 065
  10. CEFAZOLIN [Concomitant]
     Active Substance: CEFAZOLIN
     Indication: Product used for unknown indication
     Route: 065

REACTIONS (2)
  - Septic shock [Fatal]
  - Condition aggravated [Unknown]
